FAERS Safety Report 4318671-7 (Version None)
Quarter: 2004Q1

REPORT INFORMATION
  Report Type: 
  Country: None (occurrence: None)
  Receive Date: 20040315
  Receipt Date: 20040223
  Transmission Date: 20041129
  Serious: Yes (Other)
  Sender: FDA-Public Use
  Company Number: B0325227A

PATIENT

DRUGS (1)
  1. WELLBUTRIN [Suspect]
     Indication: EX-SMOKER
     Dosage: UNK, UNK; UNKNOWN
     Route: 065

REACTIONS (3)
  - BACK CRUSHING [None]
  - CONVULSION [None]
  - SPINAL FRACTURE [None]
